FAERS Safety Report 9097019 (Version 1)
Quarter: 2013Q1

REPORT INFORMATION
  Report Type: Spontaneous
  Country: GB (occurrence: None)
  Receive Date: 20130125
  Receipt Date: 20130125
  Transmission Date: 20140127
  Serious: Yes (Hospitalization)
  Sender: FDA-Public Use
  Company Number: FK201300165

PATIENT
  Age: 51 Year
  Sex: Female
  Weight: 69 kg

DRUGS (10)
  1. CARBOPLATIN [Suspect]
     Indication: BREAST CANCER
     Route: 042
     Dates: start: 20121107
  2. TRASTUZUMAB [Suspect]
     Indication: BREAST CANCER
     Route: 042
     Dates: start: 20121107
  3. PARACETAMOL (PARACETAMOL) [Concomitant]
  4. PERTUZUMAB (PERTUZUMAB) [Concomitant]
  5. ENDONE (OXYCODONE HYDROCHLORIDE) [Concomitant]
  6. PICOPREP (PICO-SALAX/00755101/) [Concomitant]
  7. TEMAZEPAM (TEMAZEPAM) [Concomitant]
  8. VENLAFAXINE HYDROCHLORIDE (VENLAFAXINE HYDROCHLORIDE) [Concomitant]
  9. ZOFRAN (ONDANSETRON HYDROCHLORIDE) [Concomitant]
  10. DOCETAXEL [Suspect]

REACTIONS (3)
  - Neutropenic colitis [None]
  - Constipation [None]
  - White blood cell count decreased [None]
